FAERS Safety Report 5884406 (Version 3)
Quarter: 2014Q3

REPORT INFORMATION
  Report Type: Spontaneous
  Country: JP (occurrence: JP)
  Receive Date: 20050923
  Receipt Date: 20140915
  Transmission Date: 20150326
  Serious: Yes (Other)
  Sender: FDA-Public Use
  Company Number: PHBS2005JP13559

PATIENT
  Age: 73 Year
  Sex: Male

DRUGS (4)
  1. GLIVEC [Suspect]
     Active Substance: IMATINIB MESYLATE
     Indication: ACUTE LYMPHOCYTIC LEUKAEMIA
     Dosage: 600 MG, DAILY
     Route: 048
     Dates: start: 20040616
  2. TAMSULOSIN [Concomitant]
     Active Substance: TAMSULOSIN
  3. GLIVEC [Suspect]
     Active Substance: IMATINIB MESYLATE
     Dosage: 400 MG, UNK
  4. PREDNISOLONE. [Concomitant]
     Active Substance: PREDNISOLONE
     Indication: ACUTE LYMPHOCYTIC LEUKAEMIA
     Dosage: 60 MG,DAILY
     Dates: start: 20040616

REACTIONS (2)
  - Blast cell count decreased [Unknown]
  - Bone marrow necrosis [Recovered/Resolved]

NARRATIVE: CASE EVENT DATE: 20040622
